FAERS Safety Report 8915448 (Version 1)
Quarter: 2012Q4

REPORT INFORMATION
  Report Type: Report from Study
  Country: CH (occurrence: CH)
  Receive Date: 20121116
  Receipt Date: 20121116
  Transmission Date: 20130627
  Serious: Yes (Hospitalization)
  Sender: FDA-Public Use
  Company Number: CH-BAXTER-2012BAX020863

PATIENT
  Age: 45 Year
  Sex: Female
  Weight: 56 kg

DRUGS (4)
  1. ENDOXAN [Suspect]
     Indication: HER-2 POSITIVE BREAST CANCER
     Route: 042
     Dates: start: 20120227
  2. ENDOXAN [Suspect]
     Route: 042
     Dates: start: 20120410
  3. DOXORUBICIN [Suspect]
     Indication: HER-2 POSITIVE BREAST CANCER
     Route: 042
     Dates: start: 20120227
  4. DOXORUBICIN [Suspect]
     Route: 042
     Dates: start: 20120410

REACTIONS (1)
  - Dehydration [Recovered/Resolved]
